FAERS Safety Report 4811556-9 (Version None)
Quarter: 2005Q4

REPORT INFORMATION
  Report Type: 
  Country: None (occurrence: None)
  Receive Date: 20051025
  Receipt Date: 20051014
  Transmission Date: 20060501
  Serious: Yes (Other)
  Sender: FDA-Public Use
  Company Number: 2005143261

PATIENT
  Age: 10 Year
  Sex: Female
  Weight: 21.3 kg

DRUGS (2)
  1. GENOTROPIN [Suspect]
     Indication: HYPOPITUITARISM
     Dosage: 0.7 MG (0.7 MG, DAILY), SUBCUTANEOUS
     Route: 058
     Dates: start: 20031007, end: 20041031
  2. AREDIA [Concomitant]

REACTIONS (1)
  - MULTIPLE FRACTURES [None]
